FAERS Safety Report 15440859 (Version 1)
Quarter: 2018Q3

REPORT INFORMATION
  Report Type: Spontaneous
  Country: BR (occurrence: BR)
  Receive Date: 20180928
  Receipt Date: 20180928
  Transmission Date: 20181010
  Serious: Yes (Hospitalization, Other)
  Sender: FDA-Public Use
  Company Number: BR-PFIZER INC-2018374672

PATIENT
  Age: 91 Year
  Sex: Female

DRUGS (3)
  1. XALATAN [Suspect]
     Active Substance: LATANOPROST
     Dosage: UNK, ONCE PER NIGHT
  2. XALATAN [Suspect]
     Active Substance: LATANOPROST
     Dosage: UNK, ONCE PER NIGHT
  3. COSOPT [Concomitant]
     Active Substance: DORZOLAMIDE HYDROCHLORIDE\TIMOLOL MALEATE
     Dosage: TWICE A DAY EVERY 12 HOURS

REACTIONS (2)
  - Urinary tract infection [Unknown]
  - Femur fracture [Unknown]
